FAERS Safety Report 7430803-0 (Version None)
Quarter: 2011Q2

REPORT INFORMATION
  Report Type: 
  Country: None (occurrence: None)
  Receive Date: 20110421
  Receipt Date: 20110413
  Transmission Date: 20111010
  Serious: Yes (Hospitalization)
  Sender: FDA-Public Use
  Company Number: US-ABBOTT-11P-163-0718856-00

PATIENT
  Sex: Male
  Weight: 123.49 kg

DRUGS (9)
  1. MULTI-VITAMINS [Concomitant]
     Indication: PRODUCT USED FOR UNKNOWN INDICATION
  2. NIASPAN [Suspect]
     Route: 048
     Dates: start: 20110301
  3. NIASPAN [Suspect]
     Route: 048
     Dates: start: 20110101, end: 20110201
  4. NIASPAN [Suspect]
     Indication: BLOOD CHOLESTEROL INCREASED
     Dosage: 2000 MG DAILY
     Dates: start: 19970101, end: 19990101
  5. NIASPAN [Suspect]
     Route: 048
     Dates: start: 20101201, end: 20101201
  6. OMEPRAZOLE [Concomitant]
     Indication: PRODUCT USED FOR UNKNOWN INDICATION
     Dosage: 20MG DAILY
  7. ASPIRIN [Concomitant]
     Indication: PRODUCT USED FOR UNKNOWN INDICATION
  8. METOPROLOL [Concomitant]
     Indication: PRODUCT USED FOR UNKNOWN INDICATION
     Dosage: 50MG; TWICE DAILY
  9. FISH OIL [Concomitant]
     Indication: PRODUCT USED FOR UNKNOWN INDICATION
     Dosage: 400MG DAILY

REACTIONS (10)
  - BACK PAIN [None]
  - CHEST DISCOMFORT [None]
  - WEIGHT INCREASED [None]
  - MYOCARDIAL INFARCTION [None]
  - PAIN [None]
  - CHEST PAIN [None]
  - ACTIVITIES OF DAILY LIVING IMPAIRED [None]
  - DEVICE OCCLUSION [None]
  - DYSPNOEA [None]
  - BREAST PAIN [None]
